FAERS Safety Report 6726344-6 (Version None)
Quarter: 2010Q2

REPORT INFORMATION
  Report Type: 
  Country: None (occurrence: None)
  Receive Date: 20100514
  Receipt Date: 20100507
  Transmission Date: 20101027
  Serious: Yes (Death, Hospitalization)
  Sender: FDA-Public Use
  Company Number: A0793551A

PATIENT
  Age: 59 Year
  Sex: Male

DRUGS (1)
  1. AVANDIA [Suspect]
     Dosage: 8U PER DAY
     Route: 048
     Dates: start: 20000101, end: 20060531

REACTIONS (3)
  - DEATH [None]
  - HEPATIC FAILURE [None]
  - MYOCARDIAL INFARCTION [None]
